FAERS Safety Report 6030494-X (Version None)
Quarter: 2008Q4

REPORT INFORMATION
  Report Type: 
  Country: None (occurrence: None)
  Receive Date: 20081222
  Receipt Date: 20080916
  Transmission Date: 20090506
  Serious: Yes (Other)
  Sender: FDA-Public Use
  Company Number: US-WYE-H06016608

PATIENT
  Age: 50 Year
  Sex: Female
  Weight: 61.29 kg

DRUGS (2)
  1. PRISTIQ [Suspect]
     Indication: ANXIETY
     Dates: start: 20080913, end: 20080915
  2. LIPITOR [Concomitant]

REACTIONS (3)
  - DISTURBANCE IN ATTENTION [None]
  - DRY MOUTH [None]
  - INSOMNIA [None]
